FAERS Safety Report 9565698 (Version 1)
Quarter: 2013Q3

REPORT INFORMATION
  Report Type: Spontaneous
  Country: US (occurrence: US)
  Receive Date: 20130930
  Receipt Date: 20130930
  Transmission Date: 20140515
  Serious: No
  Sender: FDA-Public Use
  Company Number: US-009507513-1309USA014489

PATIENT
  Age: 66 Year
  Sex: Female

DRUGS (4)
  1. CLARITIN LIQUIGELS [Suspect]
     Indication: SEASONAL ALLERGY
     Dosage: 10 MG, BID
     Route: 048
     Dates: start: 20130910, end: 20130913
  2. CLARITIN LIQUIGELS [Suspect]
     Indication: RHINORRHOEA
  3. CLONAZEPAM [Concomitant]
     Indication: ANXIETY
     Dosage: UNK, UNKNOWN
  4. ATENOLOL [Concomitant]
     Indication: HEART RATE INCREASED
     Dosage: UNK, UNKNOWN

REACTIONS (1)
  - Heart rate increased [Recovering/Resolving]
